FAERS Safety Report 9014647 (Version 1)
Quarter: 2013Q1

REPORT INFORMATION
  Report Type: Spontaneous
  Country: BR (occurrence: BR)
  Receive Date: 20130115
  Receipt Date: 20130115
  Transmission Date: 20140127
  Serious: Yes (Death, Hospitalization)
  Sender: FDA-Public Use
  Company Number: BR-ABBOTT-13P-020-1035415-00

PATIENT
  Age: 67 Year
  Sex: Male

DRUGS (2)
  1. HUMIRA [Suspect]
     Indication: PSORIATIC ARTHROPATHY
     Route: 058
  2. DEFLAZACORT [Concomitant]
     Indication: PSORIATIC ARTHROPATHY
     Route: 048
     Dates: start: 201207

REACTIONS (7)
  - Hodgkin^s disease [Fatal]
  - Septic shock [Fatal]
  - Asthenia [Unknown]
  - Yellow skin [Unknown]
  - Infection [Unknown]
  - Inflammation [Unknown]
  - Drug ineffective [Unknown]
